FAERS Safety Report 8409917 (Version 4)
Quarter: 2012Q4

REPORT INFORMATION
  Report Type: 
  Country: US (occurrence: US)
  Receive Date: 20120216
  Receipt Date: 20121101
  Transmission Date: 20130627
  Serious: Yes (Other)
  Sender: FDA-Public Use
  Company Number: US-PFIZER INC-2012039069

PATIENT
  Age: 57 Year
  Sex: Male
  Weight: 95.24 kg

DRUGS (12)
  1. NEURONTIN [Suspect]
     Indication: DIABETIC NEUROPATHY
     Dosage: UNK
     Dates: start: 2000, end: 2003
  2. NEURONTIN [Suspect]
     Dosage: UNK
  3. LYRICA [Suspect]
     Indication: DIABETIC NEUROPATHY
     Dosage: 100 mg, 2x/day
     Dates: start: 2003
  4. LYRICA [Suspect]
     Dosage: UNK
  5. ACETYLSALICYLIC ACID [Concomitant]
     Dosage: UNK
  6. CARDIZEM [Concomitant]
     Dosage: UNK
  7. DEXAMETHASONE [Concomitant]
     Dosage: UNK
  8. LIPITOR [Concomitant]
     Dosage: UNK
  9. IMDUR [Concomitant]
     Dosage: UNK
  10. NORVASC [Concomitant]
     Dosage: UNK
  11. TOPROL [Concomitant]
     Dosage: UNK
  12. NIASPAN [Concomitant]
     Dosage: UNK

REACTIONS (4)
  - Arterial disorder [Unknown]
  - Hypertension [Unknown]
  - Malaise [Unknown]
  - Nasopharyngitis [Unknown]
